FAERS Safety Report 8790437 (Version 1)
Quarter: 2012Q4

REPORT INFORMATION
  Report Type: Spontaneous
  Country: US (occurrence: None)
  Receive Date: 20120911
  Receipt Date: 20120911
  Transmission Date: 20130627
  Serious: Yes (Other)
  Sender: FDA-Public Use
  Company Number: None

PATIENT

DRUGS (1)
  1. LISINOPRIL [Suspect]
     Route: 048
     Dates: start: 20101110, end: 20120910

REACTIONS (5)
  - Angioedema [None]
  - Gastrointestinal disorder [None]
  - Abdominal pain [None]
  - Abdominal distension [None]
  - Nausea [None]
